FAERS Safety Report 7808029-8 (Version None)
Quarter: 2011Q4

REPORT INFORMATION
  Report Type: 
  Country: None (occurrence: None)
  Receive Date: 20111011
  Receipt Date: 20110926
  Transmission Date: 20120403
  Serious: Yes (Other)
  Sender: FDA-Public Use
  Company Number: AU-B.I. PHARMACEUTICALS,INC./RIDGEFIELD-2011-AU-01726AU

PATIENT
  Sex: Female
  Weight: 71.6 kg

DRUGS (8)
  1. PRADAXA [Suspect]
     Indication: CARDIAC FAILURE CONGESTIVE
     Dates: start: 20110915
  2. LASIX [Concomitant]
     Dosage: 40 MG
  3. PRADAXA [Suspect]
     Indication: CARDIAC ASSISTANCE DEVICE USER
  4. BICOR [Concomitant]
     Dosage: 5 MG
  5. PANAMAX [Concomitant]
  6. CORDARONE [Concomitant]
     Dosage: 200 MG
  7. RABEPRAZOLE SODIUM [Concomitant]
     Dosage: 20 MG
  8. PRADAXA [Suspect]
     Indication: ATRIAL FIBRILLATION
     Dosage: 300 MG
     Dates: start: 20110708, end: 20110914

REACTIONS (1)
  - RENAL IMPAIRMENT [None]
